FAERS Safety Report 10219310 (Version 1)
Quarter: 2014Q2

REPORT INFORMATION
  Report Type: Spontaneous
  Country: ES (occurrence: None)
  Receive Date: 20140603
  Receipt Date: 20140603
  Transmission Date: 20141212
  Serious: Yes (Hospitalization)
  Sender: FDA-Public Use
  Company Number: ABR_01666_2014

PATIENT
  Age: 47 Year
  Sex: Male

DRUGS (3)
  1. LAMOTRIGINE (LAMOTRIGINE) [Suspect]
     Indication: PARTIAL SEIZURES
     Dosage: THERAPY DATE - 7 YEARS UNTIL NOT CONTINUING??100MG 1X/12 HOURS
  2. PHENYTOIN (PHENYTOIN) [Suspect]
     Indication: PARTIAL SEIZURES
     Dosage: 100 MG 1X/8 HOURS
  3. CLOBAZAM [Concomitant]

REACTIONS (12)
  - Drug reaction with eosinophilia and systemic symptoms [None]
  - Nausea [None]
  - Vomiting [None]
  - Oliguria [None]
  - Abdominal pain [None]
  - Renal failure [None]
  - Hepatic function abnormal [None]
  - Aspartate aminotransferase increased [None]
  - Alanine aminotransferase increased [None]
  - Gamma-glutamyltransferase increased [None]
  - Blood alkaline phosphatase increased [None]
  - Haemodialysis [None]
